FAERS Safety Report 20596177 (Version 4)
Quarter: 2022Q3

REPORT INFORMATION
  Report Type: Spontaneous
  Country: US (occurrence: US)
  Receive Date: 20220315
  Receipt Date: 20220818
  Transmission Date: 20221027
  Serious: No
  Sender: FDA-Public Use
  Company Number: US-PFIZER INC-202200342034

PATIENT
  Age: 78 Year
  Sex: Female

DRUGS (1)
  1. XELJANZ [Suspect]
     Active Substance: TOFACITINIB CITRATE
     Indication: Rheumatoid arthritis
     Dosage: UNK
     Dates: start: 20220225

REACTIONS (11)
  - Drug ineffective [Unknown]
  - Product dose omission issue [Unknown]
  - Headache [Unknown]
  - Blood pressure increased [Unknown]
  - Oropharyngeal pain [Unknown]
  - Joint swelling [Unknown]
  - Pain in extremity [Unknown]
  - Diarrhoea [Unknown]
  - Condition aggravated [Unknown]
  - Weight increased [Not Recovered/Not Resolved]
  - Fatigue [Unknown]
